FAERS Safety Report 11761637 (Version 1)
Quarter: 2015Q4

REPORT INFORMATION
  Report Type: Spontaneous
  Country: US (occurrence: US)
  Receive Date: 20151120
  Receipt Date: 20151120
  Transmission Date: 20160304
  Serious: No
  Sender: FDA-Public Use
  Company Number: US-ELI_LILLY_AND_COMPANY-US201301001816

PATIENT
  Sex: Female

DRUGS (1)
  1. FORTEO [Suspect]
     Active Substance: TERIPARATIDE
     Indication: OSTEOPOROSIS
     Dosage: 20 UG, QD

REACTIONS (8)
  - Confusional state [Unknown]
  - Injury associated with device [Unknown]
  - Back pain [Unknown]
  - Injection site haemorrhage [Unknown]
  - Balance disorder [Unknown]
  - Nausea [Recovering/Resolving]
  - Musculoskeletal disorder [Unknown]
  - Dizziness [Recovering/Resolving]
